FAERS Safety Report 10208062 (Version 1)
Quarter: 2014Q2

REPORT INFORMATION
  Report Type: Spontaneous
  Country: US (occurrence: US)
  Receive Date: 20140530
  Receipt Date: 20140530
  Transmission Date: 20141212
  Serious: No
  Sender: FDA-Public Use
  Company Number: US-ENDO PHARMACEUTICALS INC.-HYDX20130004

PATIENT
  Sex: Female

DRUGS (5)
  1. HYDROXYZINE HYDROCHLORIDE TABLETS 10MG [Suspect]
     Indication: PRURITUS
     Route: 048
     Dates: start: 201210
  2. HYDROXYZINE HYDROCHLORIDE TABLETS 10MG [Suspect]
     Indication: RASH
     Route: 048
     Dates: start: 20130128, end: 20130201
  3. BENADRYL [Suspect]
     Indication: PRURITUS
     Dosage: UNKNOWN
     Route: 065
     Dates: start: 201210
  4. BENADRYL [Suspect]
     Indication: RASH
     Dosage: UNKNOWN
     Route: 065
     Dates: start: 20130128
  5. MULTIVITAMINS [Suspect]
     Indication: SUPPLEMENTATION THERAPY
     Dosage: UNKNOWN
     Route: 065

REACTIONS (5)
  - Dyskinesia [Recovered/Resolved]
  - Muscle spasms [Recovered/Resolved]
  - Urticaria [Recovered/Resolved]
  - Rash generalised [Recovered/Resolved]
  - Dermatitis contact [Recovered/Resolved]
